FAERS Safety Report 9212913 (Version 1)
Quarter: 2013Q2

REPORT INFORMATION
  Report Type: Spontaneous
  Country: US (occurrence: None)
  Receive Date: 20130403
  Receipt Date: 20130403
  Transmission Date: 20140414
  Serious: Yes (Other)
  Sender: FDA-Public Use
  Company Number: None

PATIENT
  Age: 46 Year
  Sex: Male
  Weight: 73.94 kg

DRUGS (2)
  1. HYDROCODONE/ACETAMINOPHEN [Suspect]
     Dosage: 2 TABLETS
     Route: 048
     Dates: start: 20130321, end: 20130328
  2. HYDROCODONE/ACETAMINOPHEN [Suspect]
     Dosage: 2 TABLETS
     Route: 048
     Dates: start: 20130201, end: 20130320

REACTIONS (3)
  - Nausea [None]
  - Vomiting [None]
  - Fatigue [None]
